FAERS Safety Report 7928015-7 (Version None)
Quarter: 2011Q4

REPORT INFORMATION
  Report Type: 
  Country: None (occurrence: None)
  Receive Date: 20111117
  Receipt Date: 20111117
  Transmission Date: 20120403
  Serious: Yes (Life-Threatening)
  Sender: FDA-Public Use
  Company Number: None

PATIENT
  Sex: Female

DRUGS (1)
  1. DEXILANT [Suspect]
     Dosage: 1 TABLET TWICE EACH DA ORAL
     Route: 048
     Dates: start: 20110901, end: 20111001

REACTIONS (3)
  - DIARRHOEA [None]
  - ASTHENIA [None]
  - RASH [None]
